FAERS Safety Report 18353391 (Version 1)
Quarter: 2020Q4

REPORT INFORMATION
  Report Type: Spontaneous
  Country: US (occurrence: US)
  Receive Date: 20201006
  Receipt Date: 20201006
  Transmission Date: 20210114
  Serious: Yes (Other)
  Sender: FDA-Public Use
  Company Number: US-ROCHE-2478941

PATIENT
  Age: 57 Year
  Sex: Male

DRUGS (2)
  1. ZELBORAF [Suspect]
     Active Substance: VEMURAFENIB
     Indication: PITUITARY TUMOUR
     Dosage: ONGOING: YES (PRESENT)
     Route: 048
     Dates: start: 201910
  2. COTELLIC [Suspect]
     Active Substance: COBIMETINIB
     Indication: PITUITARY TUMOUR
     Dosage: ONGOING: YES (PRESENT)
     Route: 048
     Dates: start: 201910

REACTIONS (6)
  - Off label use [Unknown]
  - Arthralgia [Unknown]
  - Hepatotoxicity [Unknown]
  - Intentional product use issue [Unknown]
  - Rash [Unknown]
  - Endocrine disorder [Unknown]

NARRATIVE: CASE EVENT DATE: 20191118
